FAERS Safety Report 4710871-7 (Version None)
Quarter: 2005Q3

REPORT INFORMATION
  Report Type: 
  Country: None (occurrence: None)
  Receive Date: 20050711
  Receipt Date: 20050608
  Transmission Date: 20060218
  Serious: Yes (Other)
  Sender: FDA-Public Use
  Company Number: AU-GLAXOSMITHKLINE-B0384296A

PATIENT
  Age: 70 Year
  Sex: Male
  Weight: 90 kg

DRUGS (3)
  1. ZYBAN [Suspect]
     Indication: RASH
     Dosage: 300MG PER DAY
     Route: 065
     Dates: start: 20050512, end: 20050529
  2. CELEBREX [Concomitant]
     Dosage: 200U PER DAY
  3. NORVASC [Concomitant]

REACTIONS (13)
  - BURNING SENSATION [None]
  - CHILLS [None]
  - DIFFICULTY IN WALKING [None]
  - ERYTHEMA [None]
  - FEELING COLD [None]
  - HYPERAESTHESIA [None]
  - PAIN [None]
  - PAIN IN EXTREMITY [None]
  - PSORIASIS [None]
  - RASH [None]
  - RASH GENERALISED [None]
  - SKIN EXFOLIATION [None]
  - SKIN LACERATION [None]
